FAERS Safety Report 4879315-9 (Version None)
Quarter: 2006Q1

REPORT INFORMATION
  Report Type: 
  Country: None (occurrence: None)
  Receive Date: 20060112
  Receipt Date: 20051223
  Transmission Date: 20060701
  Serious: Yes (Hospitalization)
  Sender: FDA-Public Use
  Company Number: US-MERCK-0512USA03864

PATIENT
  Age: 47 Year
  Sex: Male

DRUGS (10)
  1. ZOCOR [Suspect]
     Route: 048
     Dates: start: 20040326, end: 20040419
  2. DILTIAZEM HYDROCHLORIDE [Concomitant]
     Route: 065
  3. MICARDIS [Concomitant]
     Route: 065
  4. PRILOSEC [Concomitant]
     Route: 065
  5. NEURONTIN [Concomitant]
     Route: 065
  6. CALCITRIOL [Concomitant]
     Route: 065
  7. LANTUS [Concomitant]
     Route: 058
  8. HUMALOG [Concomitant]
     Route: 058
  9. HUMALOG [Concomitant]
     Route: 058
  10. [THERAPY UNSPECIFIED] [Concomitant]
     Route: 065

REACTIONS (18)
  - BLOOD CULTURE POSITIVE [None]
  - BLOOD PRESSURE DECREASED [None]
  - CHEST DISCOMFORT [None]
  - CHEST PAIN [None]
  - CONSTIPATION [None]
  - CORONARY ARTERY DISEASE [None]
  - COUGH [None]
  - DIARRHOEA [None]
  - EXTREMITY NECROSIS [None]
  - FIBROSIS [None]
  - PALPITATIONS [None]
  - PERICARDIAL EFFUSION [None]
  - PYREXIA [None]
  - RHABDOMYOLYSIS [None]
  - SHOCK [None]
  - THROMBOCYTOPENIA [None]
  - UPPER RESPIRATORY TRACT CONGESTION [None]
  - URINE OUTPUT DECREASED [None]
